FAERS Safety Report 10610635 (Version 1)
Quarter: 2014Q4

REPORT INFORMATION
  Report Type: Spontaneous
  Country: US (occurrence: US)
  Receive Date: 20141126
  Receipt Date: 20141126
  Transmission Date: 20150529
  Serious: Yes (Hospitalization)
  Sender: FDA-Public Use
  Company Number: US-SA-2014SA158790

PATIENT
  Age: 31 Year
  Sex: Female
  Weight: 74.1 kg

DRUGS (24)
  1. TEMSIROLIMUS [Concomitant]
     Active Substance: TEMSIROLIMUS
     Indication: SQUAMOUS CELL CARCINOMA
     Route: 042
     Dates: start: 20140428, end: 20140616
  2. COLACE [Concomitant]
     Active Substance: DOCUSATE SODIUM
     Route: 048
     Dates: start: 20140704
  3. ELOXATIN [Suspect]
     Active Substance: OXALIPLATIN
     Route: 065
     Dates: start: 20140714
  4. TARCEVA [Concomitant]
     Active Substance: ERLOTINIB HYDROCHLORIDE
     Indication: SQUAMOUS CELL CARCINOMA
     Route: 048
     Dates: start: 20140303, end: 20140422
  5. OXYCONTIN [Concomitant]
     Active Substance: OXYCODONE HYDROCHLORIDE
     Route: 048
     Dates: start: 20140607
  6. TARCEVA [Concomitant]
     Active Substance: ERLOTINIB HYDROCHLORIDE
     Indication: SQUAMOUS CELL CARCINOMA
     Route: 048
     Dates: start: 20140428, end: 20140616
  7. TYLENOL [Concomitant]
     Active Substance: ACETAMINOPHEN
     Route: 048
     Dates: start: 20140305
  8. TRIAMCINOLONE [Concomitant]
     Active Substance: TRIAMCINOLONE
     Route: 061
     Dates: start: 20140310
  9. ONDANSETRON [Concomitant]
     Active Substance: ONDANSETRON
     Route: 048
     Dates: start: 20140312
  10. GABAPENTIN. [Concomitant]
     Active Substance: GABAPENTIN
     Route: 048
     Dates: start: 20140606
  11. FOLINIC ACID [Suspect]
     Active Substance: LEUCOVORIN
     Route: 065
     Dates: start: 20140714
  12. FLUOROURACIL. [Suspect]
     Active Substance: FLUOROURACIL
     Route: 065
     Dates: start: 20140714
  13. PROCHLORPERAZINE. [Concomitant]
     Active Substance: PROCHLORPERAZINE
     Route: 048
     Dates: start: 20140324
  14. ALL OTHER THERAPEUTIC PRODUCTS [Concomitant]
     Active Substance: UNSPECIFIED INGREDIENT
     Dates: start: 20140407
  15. DESONIDE. [Concomitant]
     Active Substance: DESONIDE
     Route: 061
     Dates: start: 20140408
  16. XANAX [Concomitant]
     Active Substance: ALPRAZOLAM
     Route: 048
     Dates: start: 20140606, end: 20140727
  17. XANAX [Concomitant]
     Active Substance: ALPRAZOLAM
     Route: 048
     Dates: start: 20140728
  18. ACETAMINOPHEN W/OXYCODONE [Concomitant]
     Active Substance: ACETAMINOPHEN\OXYCODONE HYDROCHLORIDE
     Dosage: 5MG-325 MG
     Route: 048
     Dates: start: 201307
  19. TEMSIROLIMUS [Concomitant]
     Active Substance: TEMSIROLIMUS
     Indication: SQUAMOUS CELL CARCINOMA
     Route: 042
     Dates: start: 20140310, end: 20140414
  20. TARCEVA [Concomitant]
     Active Substance: ERLOTINIB HYDROCHLORIDE
     Indication: SQUAMOUS CELL CARCINOMA
     Route: 048
     Dates: start: 20140710, end: 20140710
  21. SERTRALINE [Concomitant]
     Active Substance: SERTRALINE HYDROCHLORIDE
     Route: 048
     Dates: start: 20140512, end: 20140727
  22. SERTRALINE [Concomitant]
     Active Substance: SERTRALINE HYDROCHLORIDE
     Route: 048
     Dates: start: 20140728
  23. OXYCODONE [Concomitant]
     Active Substance: OXYCODONE
     Dates: start: 20140623
  24. DEXAMETHASONE. [Concomitant]
     Active Substance: DEXAMETHASONE
     Route: 048
     Dates: start: 20140623

REACTIONS (3)
  - Abdominal pain [Unknown]
  - Coccydynia [Unknown]
  - Nausea [Unknown]

NARRATIVE: CASE EVENT DATE: 20140731
